FAERS Safety Report 18933354 (Version 10)
Quarter: 2023Q2

REPORT INFORMATION
  Report Type: Report from Study
  Country: JP (occurrence: None)
  Receive Date: 20210224
  Receipt Date: 20230404
  Transmission Date: 20230721
  Serious: Yes (Hospitalization)
  Sender: FDA-Public Use
  Company Number: JP-ROCHE-2775294

PATIENT
  Age: 45 Year
  Sex: Female
  Weight: 53 kg

DRUGS (3)
  1. ATEZOLIZUMAB [Suspect]
     Active Substance: ATEZOLIZUMAB
     Indication: Triple negative breast cancer
     Dosage: DATE OF MOST RECENT DOSE (840 MG) OF ATEZOLIZUMAB PRIOR TO SAE ONSET: 12/FEB/2021
     Route: 041
     Dates: start: 20210115
  2. PACLITAXEL [Suspect]
     Active Substance: PACLITAXEL
     Indication: Triple negative breast cancer
     Dosage: DATE OF MOST RECENT DOSE (123.44 MG) OF PACLITAXEL PRIOR TO AE/SAE ONSET: 12/FEB/2021
     Route: 042
     Dates: start: 20210115
  3. NEXIUM [Suspect]
     Active Substance: ESOMEPRAZOLE MAGNESIUM
     Indication: Product used for unknown indication
     Route: 065
     Dates: start: 20210212, end: 20210219

REACTIONS (1)
  - Hepatic function abnormal [Recovered/Resolved]

NARRATIVE: CASE EVENT DATE: 20210219
